FAERS Safety Report 8908393 (Version 2)
Quarter: 2012Q4

REPORT INFORMATION
  Report Type: 
  Country: US (occurrence: US)
  Receive Date: 20121114
  Receipt Date: 20121127
  Transmission Date: 20130627
  Serious: Yes (Hospitalization, Other)
  Sender: FDA-Public Use
  Company Number: PHEH2012US021301

PATIENT
  Age: 64 Year
  Sex: Female

DRUGS (1)
  1. GILENYA [Suspect]
     Indication: MULTIPLE SCLEROSIS
     Dosage: 0.5 mg, QD
     Route: 048
     Dates: start: 201205

REACTIONS (12)
  - Clostridium difficile colitis [Recovering/Resolving]
  - Abdominal pain [Recovering/Resolving]
  - Haematochezia [Recovering/Resolving]
  - Clostridium test positive [Recovering/Resolving]
  - Fatigue [Recovering/Resolving]
  - Diarrhoea [Recovering/Resolving]
  - Nausea [Recovering/Resolving]
  - Back pain [Recovering/Resolving]
  - Bronchitis [Unknown]
  - Pneumonia [Unknown]
  - Blood glucose increased [Unknown]
  - Urinary tract infection [Unknown]
